FAERS Safety Report 8965704 (Version 1)
Quarter: 2012Q4

REPORT INFORMATION
  Report Type: Spontaneous
  Country: DK (occurrence: None)
  Receive Date: 20121206
  Receipt Date: 20121206
  Transmission Date: 20130627
  Serious: Yes (Hospitalization)
  Sender: FDA-Public Use
  Company Number: 2012MA013812

PATIENT
  Age: 68 Year
  Sex: Female

DRUGS (5)
  1. FEVERALL [Suspect]
     Indication: BACTERIAL PNEUMONIA
     Route: 048
     Dates: start: 20121109, end: 20121115
  2. AMOXICILLIN + CLAVULANIC ACID [Suspect]
     Route: 048
     Dates: start: 20121109, end: 20121115
  3. LEVOFLOXACIN (LEVOFLOXACIN) [Suspect]
     Route: 048
     Dates: start: 20121114, end: 20121115
  4. CARDIOASPIRIN [Concomitant]
  5. SIVASTIN [Concomitant]

REACTIONS (1)
  - Hepatitis acute [None]
